FAERS Safety Report 8805590 (Version 1)
Quarter: 2012Q4

REPORT INFORMATION
  Report Type: Report from Study
  Country: US (occurrence: US)
  Receive Date: 20120924
  Receipt Date: 20120924
  Transmission Date: 20130627
  Serious: Yes (Hospitalization)
  Sender: FDA-Public Use
  Company Number: US-ROCHE-1127245

PATIENT
  Age: 58 Year
  Sex: Male
  Weight: 87.17 kg

DRUGS (1)
  1. ZELBORAF [Suspect]
     Indication: METASTATIC MALIGNANT MELANOMA
     Route: 048
     Dates: start: 20120706

REACTIONS (4)
  - Pulmonary oedema [Recovered/Resolved]
  - Photosensitivity reaction [Not Recovered/Not Resolved]
  - Back pain [Recovering/Resolving]
  - Skin papilloma [Recovering/Resolving]
